FAERS Safety Report 8620881-5 (Version None)
Quarter: 2012Q3

REPORT INFORMATION
  Report Type: 
  Country: None (occurrence: None)
  Receive Date: 20120824
  Receipt Date: 20120820
  Transmission Date: 20120928
  Serious: Yes (Death, Hospitalization, Other)
  Sender: FDA-Public Use
  Company Number: CA-GENZYME-THYM-1003230

PATIENT
  Sex: Male
  Weight: 73 kg

DRUGS (3)
  1. THYMOGLOBULIN [Suspect]
     Dosage: 2 MG/KG, ONCE
     Route: 042
     Dates: start: 20120104, end: 20120104
  2. THYMOGLOBULIN [Suspect]
     Indication: PROPHYLAXIS AGAINST GRAFT VERSUS HOST DISEASE
     Dosage: 0.5 MG/KG, ONCE
     Route: 042
     Dates: start: 20120103, end: 20120103
  3. THYMOGLOBULIN [Suspect]
     Dosage: 2 MG/KG, ONCE
     Route: 042
     Dates: start: 20120106, end: 20120106

REACTIONS (12)
  - ENTEROCOCCAL BACTERAEMIA [None]
  - LOWER RESPIRATORY TRACT INFECTION VIRAL [None]
  - LOWER RESPIRATORY TRACT INFECTION BACTERIAL [None]
  - HYPOALBUMINAEMIA [None]
  - ASCITES [None]
  - GRAFT VERSUS HOST DISEASE IN SKIN [None]
  - INFECTION [None]
  - MYOPATHY [None]
  - ABDOMINAL DISTENSION [None]
  - RESPIRATORY DISTRESS [None]
  - RASH ERYTHEMATOUS [None]
  - LUNG INFILTRATION [None]
